FAERS Safety Report 21382637 (Version 3)
Quarter: 2024Q2

REPORT INFORMATION
  Report Type: Spontaneous
  Country: US (occurrence: None)
  Receive Date: 20220927
  Receipt Date: 20240514
  Transmission Date: 20240716
  Serious: Yes (Death)
  Sender: FDA-Public Use
  Company Number: US-ROCHE-3184001

PATIENT
  Age: 69 Year
  Sex: Male

DRUGS (1)
  1. HEMLIBRA [Suspect]
     Active Substance: EMICIZUMAB-KXWH
     Indication: Factor VIII deficiency
     Dosage: STRENGTH 105 MG/0.7 ML
     Route: 058
     Dates: start: 20220809, end: 20220911

REACTIONS (3)
  - Sepsis [Fatal]
  - Osteomyelitis chronic [Fatal]
  - Arthritis infective [Fatal]

NARRATIVE: CASE EVENT DATE: 20220911
